FAERS Safety Report 10525379 (Version 6)
Quarter: 2015Q3

REPORT INFORMATION
  Report Type: Report from Study
  Country: US (occurrence: US)
  Receive Date: 20141017
  Receipt Date: 20150818
  Transmission Date: 20151125
  Serious: Yes (Other)
  Sender: FDA-Public Use
  Company Number: US-SA-2014SA071470

PATIENT
  Age: 57 Year
  Sex: Female

DRUGS (4)
  1. AUBAGIO [Suspect]
     Active Substance: TERIFLUNOMIDE
     Indication: MULTIPLE SCLEROSIS
     Route: 048
     Dates: start: 201407, end: 20150715
  2. AUBAGIO [Suspect]
     Active Substance: TERIFLUNOMIDE
     Indication: MULTIPLE SCLEROSIS
     Route: 048
     Dates: start: 2015
  3. AUBAGIO [Suspect]
     Active Substance: TERIFLUNOMIDE
     Indication: MULTIPLE SCLEROSIS
     Route: 048
     Dates: start: 20140516, end: 20140613
  4. AUBAGIO [Suspect]
     Active Substance: TERIFLUNOMIDE
     Indication: MULTIPLE SCLEROSIS
     Route: 048
     Dates: start: 20140627

REACTIONS (20)
  - Hypersomnia [Unknown]
  - Hypoaesthesia [Unknown]
  - Muscle spasms [Unknown]
  - Tooth infection [Unknown]
  - Fatigue [Unknown]
  - Gingival pain [Recovered/Resolved]
  - Nausea [Unknown]
  - Activities of daily living impaired [Unknown]
  - Syncope [Unknown]
  - Asthenia [Unknown]
  - Intervertebral disc protrusion [Unknown]
  - Paraesthesia [Unknown]
  - Back pain [Unknown]
  - Central nervous system lesion [Unknown]
  - Weight decreased [Unknown]
  - Insomnia [Recovered/Resolved]
  - Gait disturbance [Unknown]
  - Drug dose omission [Unknown]
  - Malaise [Unknown]
  - Blood pressure decreased [Unknown]
